FAERS Safety Report 23059724 (Version 3)
Quarter: 2023Q4

REPORT INFORMATION
  Report Type: Spontaneous
  Country: GB (occurrence: GB)
  Receive Date: 20231012
  Receipt Date: 20231123
  Transmission Date: 20240110
  Serious: Yes (Death, Hospitalization)
  Sender: FDA-Public Use
  Company Number: GB-MHRA-MED-202309291816318190-QJGKF

PATIENT
  Age: 7 Year
  Sex: Male

DRUGS (1)
  1. RITUXIMAB [Suspect]
     Active Substance: RITUXIMAB
     Indication: Nephrotic syndrome
     Dosage: UNK

REACTIONS (4)
  - Pneumonia [Fatal]
  - Drug ineffective for unapproved indication [Fatal]
  - Embolism [Fatal]
  - Off label use [Unknown]
